FAERS Safety Report 9927729 (Version 2)
Quarter: 2014Q1

REPORT INFORMATION
  Report Type: Spontaneous
  Country: JP (occurrence: JP)
  Receive Date: 20140227
  Receipt Date: 20140310
  Transmission Date: 20141002
  Serious: Yes (Hospitalization)
  Sender: FDA-Public Use
  Company Number: JP-AMGEN-JPNSP2014013766

PATIENT
  Age: 85 Year
  Sex: Female
  Weight: 40 kg

DRUGS (9)
  1. PRALIA [Suspect]
     Indication: PRODUCT USED FOR UNKNOWN INDICATION
     Dosage: 60 MG, QD
     Route: 058
     Dates: start: 20131218, end: 20131218
  2. PRALIA [Suspect]
     Indication: OSTEOPOROSIS
  3. SELARA [Concomitant]
     Indication: CARDIAC FAILURE CHRONIC
     Route: 048
     Dates: start: 20130703, end: 20140116
  4. NATRIX [Concomitant]
     Indication: CARDIAC FAILURE CHRONIC
     Route: 048
     Dates: start: 20130717
  5. ARTIST [Concomitant]
     Indication: CARDIAC FAILURE CHRONIC
     Route: 048
     Dates: start: 20130821, end: 20140221
  6. BIO THREE [Concomitant]
     Indication: CONSTIPATION
     Route: 048
     Dates: start: 20130703
  7. AIMIX [Concomitant]
     Indication: HYPERTENSION
     Route: 048
     Dates: start: 20130821, end: 20140221
  8. PARIET [Concomitant]
     Indication: GASTRIC ULCER
     Route: 048
  9. LENDORMIN [Concomitant]
     Indication: INSOMNIA
     Route: 048
     Dates: end: 20130626

REACTIONS (1)
  - Hypocalcaemia [Recovered/Resolved]
